FAERS Safety Report 23526099 (Version 1)
Quarter: 2024Q1

REPORT INFORMATION
  Report Type: Spontaneous
  Country: BR (occurrence: BR)
  Receive Date: 20240215
  Receipt Date: 20240215
  Transmission Date: 20240409
  Serious: Yes (Hospitalization, Other)
  Sender: FDA-Public Use
  Company Number: BR-GLAXOSMITHKLINE-BR2024GSK019202

PATIENT

DRUGS (6)
  1. LAMIVUDINE [Suspect]
     Active Substance: LAMIVUDINE
     Indication: HIV infection
     Dosage: UNK
     Dates: start: 202303
  2. DOLUTEGRAVIR [Suspect]
     Active Substance: DOLUTEGRAVIR
     Indication: HIV infection
     Dosage: UNK
     Dates: start: 202303
  3. TENOFOVIR DISOPROXIL FUMARATE [Suspect]
     Active Substance: TENOFOVIR DISOPROXIL FUMARATE
     Indication: HIV infection
     Dosage: UNK
     Dates: start: 202303
  4. METHYLPREDNISOLONE [Suspect]
     Active Substance: METHYLPREDNISOLONE
     Indication: Magnetic therapy
     Dosage: 1 G, 1D
     Dates: start: 202305
  5. PREDNISONE [Suspect]
     Active Substance: PREDNISONE
     Indication: Magnetic therapy
     Dosage: 1 MG/KG
     Dates: start: 202305
  6. PREDNISONE [Suspect]
     Active Substance: PREDNISONE
     Dosage: 60 MG, 1D

REACTIONS (15)
  - Immune thrombocytopenia [Recovering/Resolving]
  - Kaposi^s sarcoma [Recovering/Resolving]
  - Immune reconstitution inflammatory syndrome [Recovering/Resolving]
  - Eyelid bleeding [Recovering/Resolving]
  - Conjunctival haemorrhage [Recovering/Resolving]
  - Genital haemorrhage [Recovering/Resolving]
  - Epistaxis [Recovering/Resolving]
  - Thrombocytopenia [Recovering/Resolving]
  - Lymphadenopathy [Recovering/Resolving]
  - Nasal obstruction [Recovering/Resolving]
  - Skin lesion [Recovering/Resolving]
  - Skin oedema [Recovering/Resolving]
  - Obstructive airways disorder [Recovering/Resolving]
  - Spontaneous haemorrhage [Recovering/Resolving]
  - Angiosarcoma metastatic [Recovering/Resolving]

NARRATIVE: CASE EVENT DATE: 20230501
